FAERS Safety Report 7288790-4 (Version None)
Quarter: 2011Q1

REPORT INFORMATION
  Report Type: 
  Country: None (occurrence: None)
  Receive Date: 20110201
  Receipt Date: 20110125
  Transmission Date: 20110831
  Serious: Yes (Other)
  Sender: FDA-Public Use
  Company Number: 2011SP003560

PATIENT
  Age: 36 Year
  Sex: Female
  Weight: 57 kg

DRUGS (10)
  1. DYNASTAT (PARECOXIN SODIUM) [Suspect]
     Indication: INTERVERTEBRAL DISC PROTRUSION
     Dosage: 40 MG;QPM
     Dates: start: 20100413, end: 20100423
  2. ROXITROL (ROXITHROMYCIN) [Suspect]
     Indication: PROPHYLAXIS AGAINST GASTROINTESTINAL ULCER
     Dosage: 40 MG;QAM
     Dates: start: 20100420, end: 20100425
  3. LOXITAN (MELOXICAM /01044401/) [Suspect]
     Indication: INTERVERTEBRAL DISC PROTRUSION
     Dosage: 15 MG
     Dates: start: 20100410, end: 20100410
  4. CELESTONE CHRONODOSE (BETAMETHASONE SODIUM PHOSPHATE/ACETATE /00309501 [Suspect]
     Indication: INTERVERTEBRAL DISC PROTRUSION
     Dosage: 6 MG
     Dates: start: 20100413, end: 20100423
  5. GABITON (GABAPENTIN) [Suspect]
     Indication: INTERVERTEBRAL DISC PROTRUSION
     Dosage: 300 MG;QD
     Dates: start: 20100420, end: 20100425
  6. NORGESIC [Suspect]
     Indication: INTERVERTEBRAL DISC PROTRUSION
     Dosage: 485 MG;Q12H
     Dates: start: 20100409, end: 20100411
  7. CELEBREX [Suspect]
     Indication: INTERVERTEBRAL DISC PROTRUSION
     Dosage: 100 MG;QAM
     Dates: start: 20100413, end: 20100423
  8. LOSEC (OMEPRAZOLE /00661201/) [Suspect]
     Indication: PROPHYLAXIS AGAINST GASTROINTESTINAL ULCER
     Dosage: 20 MG;QAM
     Dates: start: 20100409, end: 20100419
  9. FELDENE [Suspect]
     Indication: INTERVERTEBRAL DISC PROTRUSION
     Dosage: 10 MG;Q12H
     Dates: start: 20100420, end: 20100425
  10. APOTEL PULS (PARACETAMOL /00020001/) [Suspect]
     Indication: INTERVERTEBRAL DISC PROTRUSION
     Dosage: 620 MG;QPM
     Dates: start: 20100413, end: 20100423

REACTIONS (3)
  - DRUG INTERACTION [None]
  - ABORTION SPONTANEOUS [None]
  - DRUG EXPOSURE DURING PREGNANCY [None]
